FAERS Safety Report 11580868 (Version 1)
Quarter: 2015Q4

REPORT INFORMATION
  Report Type: Spontaneous
  Country: US (occurrence: US)
  Receive Date: 20151001
  Receipt Date: 20151001
  Transmission Date: 20160304
  Serious: No
  Sender: FDA-Public Use
  Company Number: PHEH2015US019196

PATIENT
  Sex: Female

DRUGS (1)
  1. TEKTURNA HCT [Suspect]
     Active Substance: ALISKIREN HEMIFUMARATE\HYDROCHLOROTHIAZIDE
     Indication: PRODUCT USED FOR UNKNOWN INDICATION
     Route: 065

REACTIONS (3)
  - Fatigue [Unknown]
  - Drug ineffective [Unknown]
  - Arthralgia [Unknown]
